FAERS Safety Report 5842135-2 (Version None)
Quarter: 2008Q3

REPORT INFORMATION
  Report Type: 
  Country: None (occurrence: None)
  Receive Date: 20080812
  Receipt Date: 20080806
  Transmission Date: 20090109
  Serious: Yes (Other)
  Sender: FDA-Public Use
  Company Number: JP-AVENTIS-200812234JP

PATIENT
  Sex: Male

DRUGS (2)
  1. LANTUS [Suspect]
     Route: 058
     Dates: start: 20080620
  2. BASEN [Suspect]
     Dates: start: 20080626, end: 20080709

REACTIONS (1)
  - LIVER FUNCTION TEST ABNORMAL [None]
